FAERS Safety Report 11751415 (Version 1)
Quarter: 2015Q4

REPORT INFORMATION
  Report Type: Spontaneous
  Country: US (occurrence: US)
  Receive Date: 20151118
  Receipt Date: 20151118
  Transmission Date: 20160304
  Serious: Yes (Other)
  Sender: FDA-Public Use
  Company Number: US-NOVOPROD-424752

PATIENT
  Age: 34 Year
  Sex: Male
  Weight: 108.93 kg

DRUGS (3)
  1. NOVOLOG [Suspect]
     Active Substance: INSULIN ASPART
     Dosage: 1.4 U/HR (LAST BASAL INFUSION RATE OF NOVOLOG PRIOR TO EPISODE OCCURRING ON 22-SEP-2014)
     Route: 058
     Dates: start: 20140922
  2. NOVOLOG [Suspect]
     Active Substance: INSULIN ASPART
     Indication: TYPE 1 DIABETES MELLITUS
     Dosage: 70 U, QD
     Route: 058
     Dates: start: 2008
  3. NOVOLOG [Suspect]
     Active Substance: INSULIN ASPART
     Dosage: 11.6 U (LAST NOVOLOG BOLUS PRIOR TO EPISODE OCCURRING ON 22-SEP-2014)
     Route: 058
     Dates: start: 20140922

REACTIONS (1)
  - Hypoglycaemia [Recovered/Resolved]

NARRATIVE: CASE EVENT DATE: 20140922
